FAERS Safety Report 7619117-3 (Version None)
Quarter: 2011Q3

REPORT INFORMATION
  Report Type: 
  Country: None (occurrence: None)
  Receive Date: 20110718
  Receipt Date: 20110708
  Transmission Date: 20111222
  Serious: Yes (Hospitalization)
  Sender: FDA-Public Use
  Company Number: US-ASTRAZENECA-2010SE19676

PATIENT
  Age: 24 Year
  Sex: Female

DRUGS (48)
  1. SEROQUEL [Suspect]
     Route: 048
     Dates: start: 20090312
  2. ALBUTEROL SULFATE AUTOHALER [Concomitant]
     Indication: WHEEZING
     Dosage: 90MCG/ INH, 4 TIMES A DAY AS NEEDED
     Route: 055
  3. GEMFIBROZIL [Concomitant]
     Route: 048
  4. TOPAMAX [Concomitant]
     Route: 048
  5. LORATADINE [Concomitant]
     Route: 048
  6. IMURAN [Concomitant]
  7. PREDNISONE [Concomitant]
     Route: 048
  8. SUBOXONE [Concomitant]
     Dosage: 8MG-2MG DISINTEGRATING THREE TIMES A DAY
     Route: 060
     Dates: start: 20090312
  9. ZOFRAN [Concomitant]
     Indication: NAUSEA
     Route: 048
     Dates: start: 20090312
  10. ZOFRAN [Concomitant]
     Route: 048
  11. ACTONEL [Concomitant]
     Route: 048
  12. EFFEXOR XR [Concomitant]
     Route: 048
     Dates: start: 20090312
  13. ELMIRON [Concomitant]
     Route: 048
     Dates: start: 20090312
  14. IPRATROPIUM BROMIDE [Concomitant]
     Indication: WHEEZING
     Dosage: 18 MCG/ INH AS NEEDED
     Route: 055
  15. MESTINON [Concomitant]
     Route: 048
  16. DROSPIRENONE AND ETHINYL ESTRADIOL [Concomitant]
     Route: 048
  17. YASMIN [Concomitant]
     Route: 048
  18. VITAMIN D [Concomitant]
     Route: 048
     Dates: start: 20090313
  19. FOLIC ACID [Concomitant]
     Route: 048
     Dates: start: 20090312
  20. LIDODERM [Concomitant]
     Indication: ARTHRALGIA
     Dosage: 1 PATCH DAILY AS NEEDED
     Route: 061
  21. MELATONIN [Concomitant]
     Route: 048
  22. ZOFRAN [Concomitant]
     Route: 048
  23. YASMIN [Concomitant]
     Route: 048
  24. XOPENEX HFA [Concomitant]
     Dates: start: 20090312
  25. LANSOPRAZOLE [Concomitant]
     Route: 048
  26. TAGAMET [Concomitant]
     Indication: GASTROOESOPHAGEAL REFLUX DISEASE
     Route: 048
  27. METFORMIN HCL [Concomitant]
     Indication: DIABETES MELLITUS
     Route: 048
     Dates: start: 20090312
  28. VANCOMYCIN [Concomitant]
     Route: 048
     Dates: start: 20090313
  29. SYMBICORT [Suspect]
     Dosage: 80 MCG/4.5 MCG, TWICE A DAY
     Route: 055
     Dates: start: 20090312
  30. AMBIEN [Concomitant]
     Route: 048
     Dates: start: 20090312
  31. NOVOLOG [Concomitant]
     Indication: DIABETES MELLITUS
     Dosage: ACCORDING TO BLOOD SUGAR
     Route: 058
  32. PREDNISONE [Concomitant]
     Route: 048
     Dates: start: 20090312
  33. PHENAZOPYRIDINE HCL TAB [Concomitant]
     Route: 048
  34. ACIPHEX [Concomitant]
     Route: 048
  35. CYANOCOBALAMIN [Concomitant]
     Route: 048
  36. DILTIAZEM [Concomitant]
     Route: 048
     Dates: start: 20090312
  37. HYDROCHLOROTHIAZIDE [Concomitant]
     Route: 048
     Dates: start: 20090312
  38. KCL 20 [Concomitant]
  39. LANTUS [Concomitant]
     Indication: DIABETES MELLITUS
     Dosage: 15 UNITS EVERY MORNING
     Route: 058
  40. PHENAZOPYRIDINE HCL TAB [Concomitant]
     Indication: URINARY TRACT DISORDER
     Route: 048
  41. TAGAMET [Concomitant]
     Route: 048
  42. ZOFRAN [Concomitant]
     Indication: VOMITING
     Route: 048
     Dates: start: 20090312
  43. BENADRYL [Concomitant]
     Route: 048
     Dates: start: 20090312
  44. NEXIUM [Suspect]
     Route: 048
     Dates: start: 20090312
  45. IMURAN [Concomitant]
  46. MESTINON [Concomitant]
     Route: 048
  47. METHYLPHENIDATE [Concomitant]
     Route: 048
  48. SYNTHROID [Concomitant]
     Route: 048

REACTIONS (7)
  - GASTROOESOPHAGEAL REFLUX DISEASE [None]
  - DIABETES MELLITUS [None]
  - MALAISE [None]
  - LACTIC ACIDOSIS [None]
  - MOUTH ULCERATION [None]
  - HOSPITALISATION [None]
  - DRUG DOSE OMISSION [None]
